FAERS Safety Report 4523004-7 (Version None)
Quarter: 2004Q4

REPORT INFORMATION
  Report Type: 
  Country: None (occurrence: None)
  Receive Date: 20041208
  Receipt Date: 20041124
  Transmission Date: 20050328
  Serious: Yes (Hospitalization)
  Sender: FDA-Public Use
  Company Number: 209971

PATIENT
  Age: 70 Year
  Sex: Female
  Weight: 52 kg

DRUGS (8)
  1. HERCEPTIN [Suspect]
     Indication: BREAST CANCER METASTATIC
     Dosage: SEE IMAGE
     Route: 042
     Dates: start: 20040913, end: 20040913
  2. HERCEPTIN [Suspect]
     Indication: BREAST CANCER METASTATIC
     Dosage: SEE IMAGE
     Route: 042
     Dates: start: 20040928, end: 20041026
  3. HERCEPTIN [Suspect]
     Indication: BREAST CANCER METASTATIC
     Dosage: SEE IMAGE
     Route: 042
     Dates: start: 20041102
  4. TAXOL [Suspect]
     Indication: BREAST CANCER METASTATIC
     Dosage: 80 MG, 1/WEEK
     Dates: start: 20040928, end: 20041026
  5. FAMOTIDINE [Concomitant]
  6. DIPHENHYDRAMINE HYDROCHLORIDE [Concomitant]
  7. DEXAMETHASONE [Concomitant]
  8. KYTRIL [Concomitant]

REACTIONS (3)
  - NEUTROPHIL COUNT DECREASED [None]
  - PYREXIA [None]
  - WHITE BLOOD CELL COUNT DECREASED [None]
